FAERS Safety Report 19988938 (Version 1)
Quarter: 2021Q4

REPORT INFORMATION
  Report Type: Report from Study
  Country: None (occurrence: CL)
  Receive Date: 20211024
  Receipt Date: 20211024
  Transmission Date: 20220303
  Serious: Yes (Other)
  Sender: FDA-Public Use
  Company Number: CL-ABBVIE-21K-034-4069657-00

PATIENT
  Age: 53 Year
  Sex: Female

DRUGS (1)
  1. HUMIRA [Suspect]
     Active Substance: ADALIMUMAB
     Indication: Rheumatoid arthritis
     Route: 058
     Dates: start: 20161128, end: 202107

REACTIONS (5)
  - Knee deformity [Unknown]
  - Knee arthroplasty [Unknown]
  - Joint arthroplasty [Recovering/Resolving]
  - Gait disturbance [Unknown]
  - Hip deformity [Unknown]

NARRATIVE: CASE EVENT DATE: 20210802
